FAERS Safety Report 5806795-4 (Version None)
Quarter: 2008Q3

REPORT INFORMATION
  Report Type: 
  Country: None (occurrence: None)
  Receive Date: 20080711
  Receipt Date: 20080707
  Transmission Date: 20090109
  Serious: Yes (Life-Threatening, Other)
  Sender: FDA-Public Use
  Company Number: PHBS2007JP21269

PATIENT
  Age: 37 Year
  Sex: Female

DRUGS (2)
  1. METHERGINE [Suspect]
     Indication: PROPHYLAXIS
     Dosage: 0.125 MG, TID
     Route: 048
     Dates: start: 20071213
  2. OXYTOCIN [Concomitant]

REACTIONS (9)
  - ARTERIOSPASM CORONARY [None]
  - ATRIOVENTRICULAR BLOCK COMPLETE [None]
  - CARDIAC ARREST [None]
  - CARDIOVERSION [None]
  - CHEST PAIN [None]
  - LOSS OF CONSCIOUSNESS [None]
  - RESUSCITATION [None]
  - SINUS TACHYCARDIA [None]
  - VENTRICULAR FIBRILLATION [None]
